FAERS Safety Report 17758160 (Version 2)
Quarter: 2020Q2

REPORT INFORMATION
  Report Type: Spontaneous
  Country: US (occurrence: US)
  Receive Date: 20200507
  Receipt Date: 20200511
  Transmission Date: 20200714
  Serious: No
  Sender: FDA-Public Use
  Company Number: US-TEVA-2020-US-1232264

PATIENT
  Sex: Male
  Weight: 104.33 kg

DRUGS (1)
  1. SILDENAFIL CITRATE. [Suspect]
     Active Substance: SILDENAFIL CITRATE
     Indication: ERECTILE DYSFUNCTION
     Dosage: ROUND WHITE TABLET, 100 MG,1 TABLET AS NEEDED
     Route: 048
     Dates: start: 20200327

REACTIONS (2)
  - Drug ineffective [Unknown]
  - Product substitution issue [Unknown]
